FAERS Safety Report 16941129 (Version 1)
Quarter: 2019Q4

REPORT INFORMATION
  Report Type: Spontaneous
  Country: US (occurrence: US)
  Receive Date: 20191019
  Receipt Date: 20191019
  Transmission Date: 20200122
  Serious: Yes (Hospitalization)
  Sender: FDA-Public Use
  Company Number: None

PATIENT
  Age: 24 Year
  Sex: Female
  Weight: 51.75 kg

DRUGS (1)
  1. INJECTAFER [Suspect]
     Active Substance: FERRIC CARBOXYMALTOSE
     Indication: IRON DEFICIENCY ANAEMIA
     Route: 041
     Dates: start: 20191018, end: 20191018

REACTIONS (6)
  - Tachycardia [None]
  - Chest pain [None]
  - Dyspnoea [None]
  - Chest discomfort [None]
  - Tremor [None]
  - Nasal congestion [None]

NARRATIVE: CASE EVENT DATE: 20191018
